FAERS Safety Report 12093406 (Version 2)
Quarter: 2016Q1

REPORT INFORMATION
  Report Type: Spontaneous
  Country: US (occurrence: US)
  Receive Date: 20160219
  Receipt Date: 20160219
  Transmission Date: 20160526
  Serious: Yes (Other)
  Sender: FDA-Public Use
  Company Number: US-ACTAVIS-2016-03702

PATIENT
  Sex: Female

DRUGS (6)
  1. HALOPERIDOL (WATSON LABORATORIES) [Suspect]
     Active Substance: HALOPERIDOL
     Indication: NEUROPSYCHIATRIC SYNDROME
     Dosage: UNK
     Route: 065
  2. OLANZAPINE (UNKNOWN) [Suspect]
     Active Substance: OLANZAPINE
     Indication: NEUROPSYCHIATRIC SYNDROME
     Dosage: UNK
     Route: 065
  3. ZINC ACETATE [Concomitant]
     Active Substance: ZINC ACETATE
     Indication: HEPATO-LENTICULAR DEGENERATION
     Dosage: UNK
     Route: 065
  4. LITHIUM. [Suspect]
     Active Substance: LITHIUM
     Indication: NEUROPSYCHIATRIC SYNDROME
     Dosage: UNK
     Route: 065
  5. QUETIAPINE (AGPTC) [Suspect]
     Active Substance: QUETIAPINE
     Indication: NEUROPSYCHIATRIC SYNDROME
     Dosage: 400 MG, UNKNOWN
     Route: 065
  6. CHLORPROMAZINE HYDROCHLORIDE (WATSON LABORATORIES) [Suspect]
     Active Substance: CHLORPROMAZINE HYDROCHLORIDE
     Indication: NEUROPSYCHIATRIC SYNDROME
     Dosage: UNK
     Route: 065

REACTIONS (3)
  - Extrapyramidal disorder [Unknown]
  - Drug ineffective [Unknown]
  - Akathisia [Unknown]
